FAERS Safety Report 20763066 (Version 12)
Quarter: 2024Q1

REPORT INFORMATION
  Report Type: Spontaneous
  Country: US (occurrence: US)
  Receive Date: 20220428
  Receipt Date: 20240328
  Transmission Date: 20240410
  Serious: Yes (Other)
  Sender: FDA-Public Use
  Company Number: US-PFIZER INC-202101815454

PATIENT
  Age: 70 Year
  Sex: Female
  Weight: 68.04 kg

DRUGS (6)
  1. TIKOSYN [Suspect]
     Active Substance: DOFETILIDE
     Indication: Arrhythmia
     Dosage: 500 UG, 2X/DAY
     Route: 048
     Dates: start: 20211211, end: 20211212
  2. TIKOSYN [Suspect]
     Active Substance: DOFETILIDE
     Dosage: 250 (DOSAGE UNITS NOT REPORTED)
     Dates: start: 20211212, end: 202203
  3. TIKOSYN [Suspect]
     Active Substance: DOFETILIDE
     Dosage: 250 UG, 2X/DAY (250 UG BID)
     Route: 048
  4. PROPRANOLOL [Concomitant]
     Active Substance: PROPRANOLOL HYDROCHLORIDE
     Dosage: 10 MG, 2X/DAY
  5. ELIQUIS [Concomitant]
     Active Substance: APIXABAN
     Dosage: 5 MG, 2X/DAY
  6. SYNTHROID [Concomitant]
     Active Substance: LEVOTHYROXINE SODIUM
     Indication: Hypothyroidism
     Dosage: 0.75 MG

REACTIONS (9)
  - Electrocardiogram QT prolonged [Unknown]
  - Cardiac ablation [Unknown]
  - Blood potassium decreased [Unknown]
  - Drug ineffective [Unknown]
  - Feeling abnormal [Unknown]
  - Drug level increased [Unknown]
  - Cardiac disorder [Unknown]
  - Influenza [Unknown]
  - Wrong strength [Unknown]

NARRATIVE: CASE EVENT DATE: 20211201
